FAERS Safety Report 8482536-X (Version None)
Quarter: 2012Q3

REPORT INFORMATION
  Report Type: 
  Country: None (occurrence: None)
  Receive Date: 20120702
  Receipt Date: 20120626
  Transmission Date: 20120928
  Serious: Yes (Death, Other)
  Sender: FDA-Public Use
  Company Number: CN-JNJFOC-20120614505

PATIENT

DRUGS (13)
  1. IFOSFAMIDE [Suspect]
     Indication: DIFFUSE LARGE B-CELL LYMPHOMA
     Route: 065
  2. DAUNORUBICIN HCL [Suspect]
     Indication: DIFFUSE LARGE B-CELL LYMPHOMA
     Route: 065
  3. CISPLATIN [Suspect]
     Indication: DIFFUSE LARGE B-CELL LYMPHOMA
     Route: 065
  4. BORTEZOMIB [Suspect]
     Dosage: AT DAY 8
     Route: 042
  5. ETOPOSIDE [Suspect]
     Indication: DIFFUSE LARGE B-CELL LYMPHOMA
     Route: 065
  6. VINCRISTINE [Suspect]
     Indication: DIFFUSE LARGE B-CELL LYMPHOMA
     Route: 065
  7. DOXORUBICIN HYDROCHLORIDE [Suspect]
     Indication: DIFFUSE LARGE B-CELL LYMPHOMA
     Route: 042
  8. CYTARABINE [Suspect]
     Indication: DIFFUSE LARGE B-CELL LYMPHOMA
     Route: 065
  9. BORTEZOMIB [Suspect]
     Indication: DIFFUSE LARGE B-CELL LYMPHOMA
     Dosage: DAY 1 (12 HR BEFORE CHEMOTHERAPY)
     Route: 042
  10. PREDNISONE [Suspect]
     Indication: DIFFUSE LARGE B-CELL LYMPHOMA
     Route: 065
  11. DEXAMETHASONE [Suspect]
     Indication: DIFFUSE LARGE B-CELL LYMPHOMA
     Route: 065
  12. CYCLOPHOSPHAMIDE [Suspect]
     Indication: DIFFUSE LARGE B-CELL LYMPHOMA
     Route: 065
  13. CARBOPLATIN [Suspect]
     Indication: DIFFUSE LARGE B-CELL LYMPHOMA
     Route: 065

REACTIONS (6)
  - HERPES ZOSTER [None]
  - HYPOTENSION [None]
  - INFECTION [None]
  - DIFFUSE LARGE B-CELL LYMPHOMA [None]
  - BONE MARROW FAILURE [None]
  - RASH [None]
